FAERS Safety Report 17468369 (Version 1)
Quarter: 2020Q1

REPORT INFORMATION
  Report Type: Spontaneous
  Country: ES (occurrence: ES)
  Receive Date: 20200227
  Receipt Date: 20200227
  Transmission Date: 20200409
  Serious: Yes (Other)
  Sender: FDA-Public Use
  Company Number: ES-AMGEN-ESPSP2020029307

PATIENT
  Sex: Male

DRUGS (2)
  1. NPLATE [Suspect]
     Active Substance: ROMIPLOSTIM
     Indication: IMMUNE THROMBOCYTOPENIC PURPURA
     Dosage: 8 MICROGRAM/KILOGRAM, QWK
     Route: 065
     Dates: start: 20190227, end: 20191212
  2. NPLATE [Suspect]
     Active Substance: ROMIPLOSTIM
     Dosage: 10 MICROGRAM/KILOGRAM, QWK
     Route: 065
     Dates: start: 20200123

REACTIONS (2)
  - Therapeutic response decreased [Unknown]
  - Pneumoconiosis [Unknown]

NARRATIVE: CASE EVENT DATE: 201911
